FAERS Safety Report 9209590 (Version 4)
Quarter: 2013Q3

REPORT INFORMATION
  Report Type: Report from Study
  Country: JP (occurrence: JP)
  Receive Date: 20130404
  Receipt Date: 20130805
  Transmission Date: 20140515
  Serious: Yes (Hospitalization, Other)
  Sender: FDA-Public Use
  Company Number: JP-AMGEN-JPNCT2013023420

PATIENT
  Age: 69 Year
  Sex: Female
  Weight: 36 kg

DRUGS (32)
  1. DARBEPOETIN ALFA [Suspect]
     Indication: NEPHROGENIC ANAEMIA
     Dosage: 30 MUG, Q2WK
     Route: 040
     Dates: start: 20101027, end: 20101222
  2. DARBEPOETIN ALFA [Suspect]
     Dosage: 30 MUG, QD
     Route: 040
     Dates: start: 20110112, end: 20110112
  3. DARBEPOETIN ALFA [Suspect]
     Dosage: 30 MUG, Q2WK
     Route: 058
     Dates: start: 20110126, end: 20110209
  4. DARBEPOETIN ALFA [Suspect]
     Dosage: 40 MUG, Q2WK
     Route: 058
     Dates: start: 20110223, end: 20110309
  5. DARBEPOETIN ALFA [Suspect]
     Dosage: 60 MUG, Q2WK
     Route: 058
     Dates: start: 20110323, end: 20110406
  6. DARBEPOETIN ALFA [Suspect]
     Dosage: 80 MUG, QD
     Route: 058
     Dates: start: 20110420, end: 20110420
  7. DARBEPOETIN ALFA [Suspect]
     Dosage: 80 MUG, QD
     Route: 058
     Dates: start: 20110506, end: 20110506
  8. DARBEPOETIN ALFA [Suspect]
     Dosage: 60 MUG, Q4WK
     Route: 058
     Dates: start: 20110622, end: 20110817
  9. DARBEPOETIN ALFA [Suspect]
     Dosage: 90 MUG, Q4WK
     Route: 058
     Dates: start: 20110914, end: 20120104
  10. DARBEPOETIN ALFA [Suspect]
     Dosage: 60 MUG, QD
     Route: 058
     Dates: start: 20120201, end: 20120201
  11. DARBEPOETIN ALFA [Suspect]
     Dosage: 90 MUG, QD
     Route: 058
     Dates: start: 20120306, end: 20120306
  12. DARBEPOETIN ALFA [Suspect]
     Dosage: 60 MUG, QD
     Route: 058
     Dates: start: 20120501, end: 20120501
  13. DARBEPOETIN ALFA [Suspect]
     Dosage: 60 MUG, Q2WK
     Route: 058
     Dates: start: 20120510, end: 20120524
  14. AMARYL [Concomitant]
     Dosage: UNK
     Route: 048
  15. BASEN [Concomitant]
     Dosage: UNK
     Route: 048
  16. LIPITOR [Concomitant]
     Dosage: UNK
     Route: 048
  17. NU-LOTAN [Concomitant]
     Dosage: UNK
     Route: 048
  18. KINEDAK [Concomitant]
     Dosage: UNK
     Route: 048
  19. TAKEPRON [Concomitant]
     Dosage: UNK
     Route: 048
  20. ACTOS [Concomitant]
     Dosage: UNK
     Route: 048
  21. ARGAMATE [Concomitant]
     Dosage: UNK
     Route: 048
  22. JUSO [Concomitant]
     Dosage: UNK
     Route: 048
  23. ARTIST [Concomitant]
     Dosage: UNK
     Route: 048
  24. MOHRUS [Concomitant]
     Dosage: UNK
     Route: 062
  25. CONIEL [Concomitant]
     Dosage: UNK
     Route: 048
  26. DIART [Concomitant]
     Dosage: UNK
     Route: 048
  27. ZETIA [Concomitant]
     Dosage: UNK
     Route: 048
  28. ALFAROL [Concomitant]
     Dosage: UNK
     Route: 048
  29. BAYASPIRIN [Concomitant]
     Dosage: UNK
     Route: 048
  30. ADALAT CR [Concomitant]
     Dosage: UNK
     Route: 048
  31. SEIBULE [Concomitant]
     Dosage: UNK
     Route: 048
  32. EQUA [Concomitant]
     Dosage: UNK
     Route: 048

REACTIONS (2)
  - Anaemia [Not Recovered/Not Resolved]
  - Fall [Recovering/Resolving]
